FAERS Safety Report 20408779 (Version 2)
Quarter: 2022Q1

REPORT INFORMATION
  Report Type: Spontaneous
  Country: JP (occurrence: JP)
  Receive Date: 20220201
  Receipt Date: 20220218
  Transmission Date: 20220424
  Serious: No
  Sender: FDA-Public Use
  Company Number: JP-MSD-M2022-02411

PATIENT
  Age: 70 Year
  Sex: Female

DRUGS (5)
  1. MOLNUPIRAVIR [Suspect]
     Active Substance: MOLNUPIRAVIR
     Indication: COVID-19 treatment
     Dosage: 800 MILLIGRAM, BID
     Route: 048
     Dates: start: 20220124
  2. ACETAMINOPHEN [Concomitant]
     Active Substance: ACETAMINOPHEN
     Indication: Pyrexia
     Dosage: 300 MILLIGRAM, QD
     Route: 048
  3. HERBALS [Concomitant]
     Active Substance: HERBALS
     Indication: Cough
     Dosage: 2 DOSAGE FORM, TID
     Route: 048
     Dates: start: 20220124, end: 20220131
  4. HERBALS [Concomitant]
     Active Substance: HERBALS
     Indication: Pyrexia
  5. TRANSAMIN [Concomitant]
     Active Substance: TRANEXAMIC ACID
     Indication: Laryngeal pain
     Dosage: 250 MILLIGRAM, TID
     Route: 048
     Dates: start: 20220124, end: 20220131

REACTIONS (1)
  - Rash [Recovered/Resolved]

NARRATIVE: CASE EVENT DATE: 20220101
